FAERS Safety Report 9297424 (Version 1)
Quarter: 2013Q2

REPORT INFORMATION
  Report Type: Spontaneous
  Country: US (occurrence: None)
  Receive Date: 20130517
  Receipt Date: 20130517
  Transmission Date: 20140414
  Serious: No
  Sender: FDA-Public Use
  Company Number: None

PATIENT
  Age: 84 Year
  Sex: Female

DRUGS (1)
  1. FORTEO [Suspect]
     Dosage: SQ
     Dates: start: 20121213

REACTIONS (4)
  - Joint swelling [None]
  - Local swelling [None]
  - Erythema [None]
  - Skin disorder [None]
